FAERS Safety Report 6113449-6 (Version None)
Quarter: 2009Q1

REPORT INFORMATION
  Report Type: 
  Country: None (occurrence: None)
  Receive Date: 20090312
  Receipt Date: 20090306
  Transmission Date: 20090719
  Serious: Yes (Other)
  Sender: FDA-Public Use
  Company Number: US-AVENTIS-200911890US

PATIENT
  Age: 64 Year
  Sex: Female

DRUGS (2)
  1. LANTUS [Suspect]
     Dosage: DOSE: 60 U ON SLIDING SCALE
     Route: 058
     Dates: start: 20050101
  2. OPTICLIK (INSULIN INJECTION PEN) [Suspect]
     Dates: start: 20050101

REACTIONS (1)
  - CATARACT [None]
